FAERS Safety Report 5918566-9 (Version None)
Quarter: 2008Q4

REPORT INFORMATION
  Report Type: 
  Country: None (occurrence: None)
  Receive Date: 20081010
  Receipt Date: 20080929
  Transmission Date: 20090506
  Serious: Yes (Hospitalization)
  Sender: FDA-Public Use
  Company Number: WAES 0809CAN00067

PATIENT
  Sex: Male

DRUGS (3)
  1. JANUVIA [Suspect]
     Indication: TYPE 2 DIABETES MELLITUS
     Dosage: 100 MG/AM, PO
     Route: 048
     Dates: start: 20080520, end: 20080919
  2. JANUVIA [Suspect]
     Indication: TYPE 2 DIABETES MELLITUS
     Dosage: 100 MG/AM, PO
     Route: 048
     Dates: start: 20080921
  3. METFORMIN HCL [Concomitant]

REACTIONS (2)
  - HERNIA [None]
  - URINE ODOUR ABNORMAL [None]
